FAERS Safety Report 9931739 (Version 1)
Quarter: 2014Q1

REPORT INFORMATION
  Report Type: Spontaneous
  Country: US (occurrence: US)
  Receive Date: 20140228
  Receipt Date: 20140228
  Transmission Date: 20141002
  Serious: Yes (Death, Other)
  Sender: FDA-Public Use
  Company Number: US-SA-2014SA023307

PATIENT
  Sex: Male
  Weight: 104 kg

DRUGS (14)
  1. PLAVIX [Suspect]
     Route: 048
     Dates: start: 20130124
  2. ASPIRIN [Concomitant]
     Route: 048
     Dates: start: 20130124
  3. BELATACEPT [Concomitant]
     Indication: IMMUNOSUPPRESSION
     Route: 065
     Dates: start: 20120517, end: 20130627
  4. NEXIUM [Concomitant]
  5. NOVOLOG [Concomitant]
     Dosage: SLIDING SCALE
  6. MAGNESIUM OXIDE [Concomitant]
     Route: 048
  7. LOPRESSOR [Concomitant]
     Route: 048
  8. MYCOPHENOLATE MOFETIL [Concomitant]
     Route: 048
  9. PROCARDIA [Concomitant]
     Dosage: DOSE: 60 MG AND 30 MG
     Route: 048
  10. OMEGA 3 [Concomitant]
     Route: 065
  11. PRAVACHOL [Concomitant]
  12. PREDNISONE [Concomitant]
  13. PROGRAF [Concomitant]
  14. ALL OTHER THERAPEUTIC PRODUCTS [Concomitant]

REACTIONS (4)
  - Toxoplasmosis [Fatal]
  - Cardiogenic shock [Fatal]
  - Cardiac disorder [Unknown]
  - Renal failure acute [Unknown]
